FAERS Safety Report 17110621 (Version 1)
Quarter: 2019Q4

REPORT INFORMATION
  Report Type: Spontaneous
  Country: US (occurrence: US)
  Receive Date: 20191108
  Receipt Date: 20191108
  Transmission Date: 20200122
  Serious: Yes (Hospitalization)
  Sender: FDA-Public Use
  Company Number: None

PATIENT
  Age: 50 Year
  Sex: Female
  Weight: 91.3 kg

DRUGS (1)
  1. CISPLATIN. [Suspect]
     Active Substance: CISPLATIN
     Dates: end: 20191016

REACTIONS (5)
  - Tinnitus [None]
  - Therapy cessation [None]
  - Hypophagia [None]
  - Stomatitis [None]
  - Pain [None]

NARRATIVE: CASE EVENT DATE: 20191016
